FAERS Safety Report 23298901 (Version 2)
Quarter: 2024Q1

REPORT INFORMATION
  Report Type: Report from Study
  Country: US (occurrence: US)
  Receive Date: 20231215
  Receipt Date: 20240228
  Transmission Date: 20240410
  Serious: Yes (Other)
  Sender: FDA-Public Use
  Company Number: US-ABBVIE-5535747

PATIENT
  Sex: Female

DRUGS (2)
  1. RINVOQ [Suspect]
     Active Substance: UPADACITINIB
     Indication: Rheumatoid arthritis
     Route: 048
     Dates: start: 20201018
  2. RINVOQ [Suspect]
     Active Substance: UPADACITINIB
     Indication: Rheumatoid arthritis
     Route: 048
     Dates: start: 20220309

REACTIONS (14)
  - Deafness unilateral [Unknown]
  - Hepatic enzyme increased [Recovering/Resolving]
  - Illness [Unknown]
  - Age-related macular degeneration [Unknown]
  - Gastrointestinal disorder [Unknown]
  - Vertigo [Unknown]
  - Hepatic fibrosis [Unknown]
  - Weight decreased [Unknown]
  - Retching [Unknown]
  - Vomiting [Unknown]
  - Tinnitus [Unknown]
  - Cholelithiasis [Unknown]
  - Decreased appetite [Unknown]
  - Hepatic function abnormal [Unknown]
